FAERS Safety Report 5603957-6 (Version None)
Quarter: 2008Q1

REPORT INFORMATION
  Report Type: 
  Country: None (occurrence: None)
  Receive Date: 20080123
  Receipt Date: 20080114
  Transmission Date: 20080703
  Serious: Yes (Death)
  Sender: FDA-Public Use
  Company Number: B0503080A

PATIENT
  Age: 36 Year
  Sex: Male

DRUGS (5)
  1. BUPROPION HCL [Suspect]
     Dosage: ORAL
     Route: 048
  2. BETA-BLOCKER (FORMULATION UNKNOWN) (BETA-BLOCKER) [Suspect]
     Dosage: ORAL
     Route: 048
  3. IBUPROFEN [Suspect]
     Dosage: ORAL
     Route: 048
  4. LAMICTAL [Suspect]
     Dosage: ORAL
     Route: 048
  5. UNKNOWN FORMULATION [Suspect]
     Dosage: ORAL
     Route: 048

REACTIONS (6)
  - AGITATION [None]
  - APNOEIC ATTACK [None]
  - COMPLETED SUICIDE [None]
  - DEPRESSED LEVEL OF CONSCIOUSNESS [None]
  - MYOCLONUS [None]
  - OVERDOSE [None]
